FAERS Safety Report 4788425-6 (Version None)
Quarter: 2005Q3

REPORT INFORMATION
  Report Type: 
  Country: None (occurrence: None)
  Receive Date: 20050920
  Receipt Date: 20050701
  Transmission Date: 20060218
  Serious: Yes (Hospitalization)
  Sender: FDA-Public Use
  Company Number: 0205022

PATIENT
  Age: 85 Year
  Sex: Male

DRUGS (3)
  1. DEPODUR [Suspect]
     Indication: PROCEDURAL PAIN
     Dosage: 10 MG (ONCE) EPIDURAL
     Route: 008
     Dates: start: 20050629, end: 20050629
  2. VERSED [Concomitant]
  3. PROPOFOL (PROPOFOL) (INJECTION) [Concomitant]

REACTIONS (2)
  - RESPIRATORY DEPRESSION [None]
  - SEDATION [None]
